FAERS Safety Report 15455920 (Version 1)
Quarter: 2018Q3

REPORT INFORMATION
  Report Type: Spontaneous
  Country: US (occurrence: US)
  Receive Date: 20180927
  Receipt Date: 20180927
  Transmission Date: 20181010
  Serious: Yes (Hospitalization)
  Sender: FDA-Public Use
  Company Number: None

PATIENT
  Age: 59 Year
  Sex: Female

DRUGS (12)
  1. AMITRIPYLIN [Concomitant]
  2. LEVOTHYROXIN [Concomitant]
     Active Substance: LEVOTHYROXINE
  3. METHOCARBAM [Concomitant]
     Active Substance: METHOCARBAMOL
  4. HUMIRA [Suspect]
     Active Substance: ADALIMUMAB
     Route: 058
     Dates: start: 20180125
  5. LISINOPRIL. [Concomitant]
     Active Substance: LISINOPRIL
  6. MORPHINE SUL [Concomitant]
     Active Substance: MORPHINE SULFATE
  7. DEXILANT [Concomitant]
     Active Substance: DEXLANSOPRAZOLE
  8. MELOXICOM [Concomitant]
  9. OXYCODONE [Concomitant]
     Active Substance: OXYCODONE
  10. HUMIRA [Concomitant]
     Active Substance: ADALIMUMAB
     Indication: HIDRADENITIS
     Route: 058
     Dates: start: 20180125
  11. CALCIUM [Concomitant]
     Active Substance: CALCIUM
  12. LYRICA [Concomitant]
     Active Substance: PREGABALIN

REACTIONS (2)
  - Knee arthroplasty [None]
  - Drug dose omission [None]

NARRATIVE: CASE EVENT DATE: 20180912
